FAERS Safety Report 6688175-5 (Version None)
Quarter: 2010Q2

REPORT INFORMATION
  Report Type: 
  Country: None (occurrence: None)
  Receive Date: 20100420
  Receipt Date: 20100408
  Transmission Date: 20101027
  Serious: No
  Sender: FDA-Public Use
  Company Number: US-JNJFOC-20100403137

PATIENT
  Sex: Female
  Weight: 79.83 kg

DRUGS (2)
  1. DURAGESIC-100 [Suspect]
     Indication: BACK PAIN
     Dosage: 100 UG/HR PLUS 100 UG/HR
     Route: 062
     Dates: start: 20000101
  2. DURAGESIC-100 [Suspect]
     Dosage: 100 UG/HR PLUS 100 UG/HR
     Route: 062

REACTIONS (3)
  - APPLICATION SITE REACTION [None]
  - DRUG ADMINISTERED AT INAPPROPRIATE SITE [None]
  - WRONG TECHNIQUE IN DRUG USAGE PROCESS [None]
